FAERS Safety Report 10008967 (Version 1)
Quarter: 2014Q1

REPORT INFORMATION
  Report Type: Spontaneous
  Country: US (occurrence: US)
  Receive Date: 20140313
  Receipt Date: 20140313
  Transmission Date: 20141002
  Serious: No
  Sender: FDA-Public Use
  Company Number: US-INCYTE CORPORATION-2012IN001130

PATIENT
  Age: 69 Year
  Sex: Female

DRUGS (1)
  1. JAKAFI [Suspect]
     Dosage: 20 MG, BID
     Route: 048
     Dates: start: 20120616

REACTIONS (5)
  - Diplopia [Unknown]
  - Paraesthesia oral [Unknown]
  - Pain in extremity [Unknown]
  - Gout [Unknown]
  - Weight decreased [Unknown]
